FAERS Safety Report 14270312 (Version 1)
Quarter: 2017Q4

REPORT INFORMATION
  Report Type: Spontaneous
  Country: US (occurrence: US)
  Receive Date: 20171211
  Receipt Date: 20171211
  Transmission Date: 20180321
  Serious: Yes (Hospitalization, Other)
  Sender: FDA-Public Use
  Company Number: US-OTSUKA-2017_020041

PATIENT
  Sex: Female

DRUGS (7)
  1. ABILIFY [Suspect]
     Active Substance: ARIPIPRAZOLE
     Indication: BIPOLAR DISORDER
     Dosage: (1 DF = 10 MG - 20 MG. )
     Route: 065
     Dates: start: 2004, end: 201705
  2. ABILIFY [Suspect]
     Active Substance: ARIPIPRAZOLE
     Indication: ATTENTION DEFICIT/HYPERACTIVITY DISORDER
     Dosage: 1 DF = 10 MG - 20 MG
     Route: 065
  3. ABILIFY [Suspect]
     Active Substance: ARIPIPRAZOLE
     Indication: SUBSTANCE ABUSE
     Dosage: 1 DF = 10 MG - 20 MG
     Route: 065
  4. ABILIFY [Suspect]
     Active Substance: ARIPIPRAZOLE
     Indication: ALCOHOL ABUSE
     Dosage: 1 DF = 10 MG - 20 MG
     Route: 065
  5. ABILIFY [Suspect]
     Active Substance: ARIPIPRAZOLE
     Indication: MAJOR DEPRESSION
     Dosage: 1 DF = 10 MG - 20 MG.
     Route: 065
  6. ABILIFY [Suspect]
     Active Substance: ARIPIPRAZOLE
     Indication: ANXIETY
     Dosage: 1 DF = 10 MG - 20 MG
     Route: 065
  7. ABILIFY [Suspect]
     Active Substance: ARIPIPRAZOLE
     Indication: POST-TRAUMATIC STRESS DISORDER
     Dosage: 1 DF = 10 MG - 20 MG
     Route: 065

REACTIONS (9)
  - Impulsive behaviour [Unknown]
  - Restless legs syndrome [Unknown]
  - Emotional distress [Unknown]
  - Mental disorder [Unknown]
  - Parkinson^s disease [Unknown]
  - Psychosexual disorder [Unknown]
  - Obsessive-compulsive disorder [Unknown]
  - Gambling [Unknown]
  - Injury [Unknown]
